FAERS Safety Report 23535601 (Version 2)
Quarter: 2024Q2

REPORT INFORMATION
  Report Type: Report from Study
  Country: CA (occurrence: CA)
  Receive Date: 20240218
  Receipt Date: 20240423
  Transmission Date: 20240716
  Serious: Yes (Other)
  Sender: FDA-Public Use
  Company Number: CA-MYLANLABS-2023M1092615

PATIENT

DRUGS (1)
  1. HULIO [Suspect]
     Active Substance: ADALIMUMAB-FKJP
     Indication: Uveitis
     Dosage: 40 MILLIGRAM, BIWEEKLY
     Route: 058
     Dates: start: 20230830

REACTIONS (5)
  - Uveitis [Unknown]
  - Product substitution issue [Unknown]
  - Injection site pain [Unknown]
  - Injection site erythema [Recovered/Resolved]
  - Injection site inflammation [Recovered/Resolved]
